FAERS Safety Report 4323915-1 (Version None)
Quarter: 2004Q1

REPORT INFORMATION
  Report Type: 
  Country: None (occurrence: None)
  Receive Date: 20040326
  Receipt Date: 20031027
  Transmission Date: 20041129
  Serious: No
  Sender: FDA-Public Use
  Company Number: US-GLAXOSMITHKLINE-A0431754A

PATIENT
  Age: 63 Year
  Sex: Female
  Weight: 60.9 kg

DRUGS (6)
  1. ADVAIR DISKUS 100/50 [Suspect]
     Indication: ASTHMA
     Route: 055
     Dates: start: 20010101
  2. SEREVENT [Suspect]
     Indication: ASTHMA
     Dosage: 1PUFF TWICE PER DAY
     Route: 055
     Dates: start: 20031023, end: 20031024
  3. ACTIGALL [Concomitant]
  4. GUAIFENESIN [Concomitant]
  5. CLARITIN [Concomitant]
  6. NEXIUM [Concomitant]

REACTIONS (1)
  - PARAESTHESIA [None]
